FAERS Safety Report 5923683-3 (Version None)
Quarter: 2008Q4

REPORT INFORMATION
  Report Type: 
  Country: None (occurrence: None)
  Receive Date: 20081020
  Receipt Date: 20081010
  Transmission Date: 20090506
  Serious: Yes (Hospitalization)
  Sender: FDA-Public Use
  Company Number: A0731236A

PATIENT
  Age: 53 Year
  Sex: Male
  Weight: 79.5 kg

DRUGS (21)
  1. AVANDIA [Suspect]
     Dosage: 4MG TWICE PER DAY
     Route: 048
     Dates: start: 19990101, end: 20050101
  2. AMARYL [Concomitant]
  3. HYDROCHLOROTHIAZIDE [Concomitant]
  4. LOPID [Concomitant]
  5. TYLENOL (CAPLET) [Concomitant]
  6. GEMFIBROZIL [Concomitant]
  7. DIOVAN [Concomitant]
  8. POTASSIUM CHLORIDE [Concomitant]
  9. ASPIRIN [Concomitant]
  10. CARDIZEM [Concomitant]
  11. ZANTAC [Concomitant]
  12. ENTEX CAP [Concomitant]
  13. LIBRAX [Concomitant]
  14. HYTRIN [Concomitant]
  15. SYNTHROID [Concomitant]
  16. FLOVENT [Concomitant]
  17. PROVENTIL [Concomitant]
  18. ACIPHEX [Concomitant]
  19. PHENERGAN HCL [Concomitant]
  20. ALLEGRA-D [Concomitant]
  21. ZESTORETIC [Concomitant]

REACTIONS (3)
  - INJURY [None]
  - MYOCARDIAL INFARCTION [None]
  - PAIN [None]
